FAERS Safety Report 18954469 (Version 3)
Quarter: 2021Q4

REPORT INFORMATION
  Report Type: Report from Study
  Country: IE (occurrence: IE)
  Receive Date: 20210301
  Receipt Date: 20211014
  Transmission Date: 20220303
  Serious: Yes (Hospitalization)
  Sender: FDA-Public Use
  Company Number: IE-PFIZER INC-2021180481

PATIENT
  Weight: 60.2 kg

DRUGS (13)
  1. MITOXANTRONE HYDROCHLORIDE [Suspect]
     Active Substance: MITOXANTRONE HYDROCHLORIDE
     Indication: Acute myeloid leukaemia
     Dosage: 20 MG/M2, 1X/DAY
     Route: 042
     Dates: start: 20210130, end: 20210202
  2. GEMTUZUMAB OZOGAMICIN [Suspect]
     Active Substance: GEMTUZUMAB OZOGAMICIN
     Indication: Acute myeloid leukaemia
     Dosage: 0.5 MG (OTHER)
     Route: 042
     Dates: start: 20210202, end: 20210208
  3. AMBISOME [Concomitant]
     Active Substance: AMPHOTERICIN B
     Indication: Antifungal treatment
     Dosage: 66 MG (OTHER)(M/W/F 24)
     Dates: start: 20210129, end: 20210212
  4. ONDANSETRON [Concomitant]
     Active Substance: ONDANSETRON
     Indication: Antiemetic supportive care
     Dosage: 8.0 MG (OTHER)(EVERY 8 HRS)
     Dates: start: 20210129, end: 20210210
  5. LACTULOSE [Concomitant]
     Active Substance: LACTULOSE
     Indication: Constipation
     Dosage: 15 ML (OTHER)(EVERY 12 HRS)
     Dates: start: 20210130, end: 20210201
  6. OMEPRAZOLE [Concomitant]
     Active Substance: OMEPRAZOLE
     Indication: Gastrooesophageal reflux disease
     Dosage: 10 MG, 2X/DAY (OTHER)(EVERY 12 HRS)
     Dates: start: 20210130, end: 20210209
  7. POLYETHYLENE GLYCOL 3350\POTASSIUM CHLORIDE\SODIUM BICARBONATE\SODIUM [Concomitant]
     Active Substance: POLYETHYLENE GLYCOL 3350\POTASSIUM CHLORIDE\SODIUM BICARBONATE\SODIUM CHLORIDE
     Indication: Constipation
     Dosage: UNK, 2X/DAY (EVERY 12 HOURS) (OTHER)
     Dates: start: 20210131, end: 20210206
  8. CYCLIZINE [Concomitant]
     Active Substance: CYCLIZINE
     Indication: Antiemetic supportive care
     Dosage: 25 MG, 3X/DAY (EVERY 8 HOURS) (OTHER)
     Dates: start: 20210130, end: 20210207
  9. ACETAMINOPHEN [Concomitant]
     Active Substance: ACETAMINOPHEN
     Indication: Pain
     Dosage: 1 G, 4X/DAY (EVERY 6 HRS) (OTHER)
     Dates: start: 20210202, end: 20210206
  10. ACETAMINOPHEN [Concomitant]
     Active Substance: ACETAMINOPHEN
     Indication: Pyrexia
  11. ORAMORPH SR SUSTAINED RELEASE [Concomitant]
     Active Substance: MORPHINE SULFATE
     Indication: Pain
     Dosage: 10 MG, CYCLIC (EVERY 4 HRS)
     Dates: start: 20210129, end: 20210130
  12. LEVOMEPROMAZINE [Concomitant]
     Active Substance: LEVOMEPROMAZINE
     Indication: Antiemetic supportive care
     Dosage: 3 MG, 2X/DAY (OTHER) (EVERY 12 HOURS)
     Dates: start: 20210208, end: 20210209
  13. MORPHINE [Concomitant]
     Active Substance: MORPHINE
     Indication: Pain
     Dosage: 10 MG, CYCLIC (EVERY 4 HOURS) (OTHER)
     Dates: start: 20210130, end: 20210202

REACTIONS (1)
  - Febrile neutropenia [Recovered/Resolved]

NARRATIVE: CASE EVENT DATE: 20210212
